FAERS Safety Report 8177936-1 (Version None)
Quarter: 2012Q1

REPORT INFORMATION
  Report Type: 
  Country: None (occurrence: None)
  Receive Date: 20120126
  Receipt Date: 20111028
  Transmission Date: 20120608
  Serious: No
  Sender: FDA-Public Use
  Company Number: PHEH2011US08224

PATIENT
  Age: 21 Month
  Sex: Male
  Weight: 30 kg

DRUGS (3)
  1. AFINITOR [Suspect]
     Indication: ASTROCYTOMA, LOW GRADE
     Dosage: 2.5MG DAILY, ORAL
     Route: 048
     Dates: start: 20111018
  2. TRILEPTAL [Concomitant]
  3. SABRIL [Concomitant]

REACTIONS (3)
  - CRYING [None]
  - APHAGIA [None]
  - PHARYNGITIS [None]
